FAERS Safety Report 19030814 (Version 1)
Quarter: 2021Q1

REPORT INFORMATION
  Report Type: Report from Study
  Country: US (occurrence: US)
  Receive Date: 20210319
  Receipt Date: 20210319
  Transmission Date: 20210420
  Serious: Yes (Other)
  Sender: FDA-Public Use
  Company Number: US-TAKEDA-US202006168

PATIENT
  Age: 12 Year
  Sex: Male
  Weight: 72.56 kg

DRUGS (2)
  1. LANADELUMAB [Suspect]
     Active Substance: LANADELUMAB
     Indication: IMMUNE SYSTEM DISORDER
     Dosage: 300 MILLIGRAM, 1X/2WKS
     Route: 050
  2. LANADELUMAB [Suspect]
     Active Substance: LANADELUMAB
     Dosage: 2 MILLILITER, 2/WEEK
     Route: 058
     Dates: start: 20200219

REACTIONS (5)
  - Weight abnormal [Unknown]
  - Stoma complication [Unknown]
  - Product dose omission issue [Unknown]
  - Hereditary angioedema [Unknown]
  - Injection site rash [Recovered/Resolved]

NARRATIVE: CASE EVENT DATE: 202005
